FAERS Safety Report 21423038 (Version 3)
Quarter: 2022Q4

REPORT INFORMATION
  Report Type: Report from Study
  Country: CH (occurrence: CH)
  Receive Date: 20221007
  Receipt Date: 20221121
  Transmission Date: 20230112
  Serious: Yes (Other)
  Sender: FDA-Public Use
  Company Number: CH-BIOGEN-2022BI01156293

PATIENT
  Age: 28 Year
  Sex: Female

DRUGS (5)
  1. TECFIDERA [Interacting]
     Active Substance: DIMETHYL FUMARATE
     Indication: Multiple sclerosis
     Dosage: 120MG 1-0-0 1ST WEEK
     Route: 050
     Dates: start: 20220914
  2. TECFIDERA [Interacting]
     Active Substance: DIMETHYL FUMARATE
     Dosage: 120MG 2X/DAY
     Route: 050
  3. TECFIDERA [Interacting]
     Active Substance: DIMETHYL FUMARATE
     Dosage: 120MG 1-0-1
     Route: 050
  4. TECFIDERA [Interacting]
     Active Substance: DIMETHYL FUMARATE
     Route: 050
  5. TOPAMAX [Interacting]
     Active Substance: TOPIRAMATE
     Indication: Bipolar disorder
     Route: 050

REACTIONS (6)
  - Pyelonephritis [Recovered/Resolved]
  - Dizziness [Recovered/Resolved]
  - Therapeutic product effect decreased [Not Recovered/Not Resolved]
  - Mood altered [Not Recovered/Not Resolved]
  - Drug interaction [Unknown]
  - Flushing [Not Recovered/Not Resolved]

NARRATIVE: CASE EVENT DATE: 20220901
